FAERS Safety Report 19211646 (Version 1)
Quarter: 2021Q2

REPORT INFORMATION
  Report Type: Spontaneous
  Country: US (occurrence: US)
  Receive Date: 20210503
  Receipt Date: 20210503
  Transmission Date: 20210717
  Serious: No
  Sender: FDA-Public Use
  Company Number: None

PATIENT
  Age: 61 Year
  Sex: Female

DRUGS (28)
  1. ALENDRONATE [Concomitant]
     Active Substance: ALENDRONATE SODIUM
  2. AMITRIPTYLIN [Concomitant]
     Active Substance: AMITRIPTYLINE
  3. CREON [Concomitant]
     Active Substance: PANCRELIPASE AMYLASE\PANCRELIPASE LIPASE\PANCRELIPASE PROTEASE
  4. ELIQUIS [Concomitant]
     Active Substance: APIXABAN
  5. FOLIC ACID. [Concomitant]
     Active Substance: FOLIC ACID
  6. LOSARTAN POT [Concomitant]
     Active Substance: LOSARTAN POTASSIUM
  7. MYRBETRIQ [Concomitant]
     Active Substance: MIRABEGRON
  8. ALBUTEROL HFA [Concomitant]
     Active Substance: ALBUTEROL SULFATE
  9. CIPROFLOXACN [Concomitant]
     Active Substance: CIPROFLOXACIN
  10. DILTIAZEM. [Concomitant]
     Active Substance: DILTIAZEM
  11. LEUCOVOR CA [Concomitant]
  12. MONTELUKAST [Concomitant]
     Active Substance: MONTELUKAST SODIUM
  13. REQUIP [Concomitant]
     Active Substance: ROPINIROLE HYDROCHLORIDE
  14. OMEPRAZOLE. [Concomitant]
     Active Substance: OMEPRAZOLE
  15. DIAZEPAM. [Concomitant]
     Active Substance: DIAZEPAM
  16. METFORMIN [Concomitant]
     Active Substance: METFORMIN HYDROCHLORIDE
  17. GABAPENTIN. [Concomitant]
     Active Substance: GABAPENTIN
  18. TALTZ [Suspect]
     Active Substance: IXEKIZUMAB
     Indication: ANKYLOSING SPONDYLITIS
     Route: 058
     Dates: start: 20210122
  19. CEFDINIR. [Concomitant]
     Active Substance: CEFDINIR
  20. METHOTREXATE. [Concomitant]
     Active Substance: METHOTREXATE
  21. OXAPROZIN. [Concomitant]
     Active Substance: OXAPROZIN
  22. ROPINIROLE. [Concomitant]
     Active Substance: ROPINIROLE
  23. BUT/APAP/CAF [Concomitant]
  24. CYCLOBENZAPR [Concomitant]
     Active Substance: CYCLOBENZAPRINE
  25. VANCOMYCIN [Concomitant]
     Active Substance: VANCOMYCIN
  26. DIPHENATROP [Concomitant]
  27. DULOXETINE. [Concomitant]
     Active Substance: DULOXETINE
  28. FEROSUL [Concomitant]
     Active Substance: FERROUS SULFATE

REACTIONS (3)
  - Rash [None]
  - Cardiac disorder [None]
  - Condition aggravated [None]

NARRATIVE: CASE EVENT DATE: 20210427
